FAERS Safety Report 6044902-1 (Version None)
Quarter: 2009Q1

REPORT INFORMATION
  Report Type: 
  Country: None (occurrence: None)
  Receive Date: 20090121
  Receipt Date: 20090109
  Transmission Date: 20090719
  Serious: Yes (Life-Threatening)
  Sender: FDA-Public Use
  Company Number: JP-PFIZER INC-2009155662

PATIENT

DRUGS (1)
  1. GENOTROPIN [Suspect]
     Indication: PRADER-WILLI SYNDROME
     Dosage: 1.2MG-1.4MG ALTERNATE DAY
     Route: 058
     Dates: start: 20040901

REACTIONS (1)
  - SLEEP APNOEA SYNDROME [None]
